FAERS Safety Report 4839290-X (Version None)
Quarter: 2005Q4

REPORT INFORMATION
  Report Type: 
  Country: None (occurrence: None)
  Receive Date: 20051128
  Receipt Date: 20051128
  Transmission Date: 20060501
  Serious: Yes (Life-Threatening, Disabling, Other)
  Sender: FDA-Public Use
  Company Number: None

PATIENT
  Age: 46 Year
  Sex: Female
  Weight: 58.0604 kg

DRUGS (3)
  1. VOLTAREN [Suspect]
     Indication: ANTIINFLAMMATORY THERAPY
     Dosage: 75MG PO
     Route: 048
     Dates: start: 20041111, end: 20041115
  2. VOLTAREN [Suspect]
     Indication: BONE INFARCTION
     Dosage: 75MG PO
     Route: 048
     Dates: start: 20041111, end: 20041115
  3. VOLTAREN [Suspect]
     Indication: LIGAMENT INJURY
     Dosage: 75MG PO
     Route: 048
     Dates: start: 20041111, end: 20041115

REACTIONS (25)
  - ALLERGY TO ANIMAL [None]
  - DEAFNESS UNILATERAL [None]
  - DRY EYE [None]
  - EAR CONGESTION [None]
  - EYE PAIN [None]
  - FATIGUE [None]
  - FEELING ABNORMAL [None]
  - GINGIVAL INFECTION [None]
  - HEPATOCELLULAR DAMAGE [None]
  - INFECTION [None]
  - MULTIPLE ALLERGIES [None]
  - NASAL CONGESTION [None]
  - OCULAR ICTERUS [None]
  - PAIN [None]
  - PAIN OF SKIN [None]
  - SCAB [None]
  - SINUS CONGESTION [None]
  - SOMNOLENCE [None]
  - STEVENS-JOHNSON SYNDROME [None]
  - SUNBURN [None]
  - TEARFULNESS [None]
  - TEMPERATURE INTOLERANCE [None]
  - TOOTH FRACTURE [None]
  - TYMPANIC MEMBRANE PERFORATION [None]
  - WOUND SECRETION [None]
